FAERS Safety Report 9785696 (Version 2)
Quarter: 2014Q2

REPORT INFORMATION
  Report Type: Spontaneous
  Country: US (occurrence: US)
  Receive Date: 20131227
  Receipt Date: 20140415
  Transmission Date: 20141212
  Serious: Yes (Hospitalization, Other)
  Sender: FDA-Public Use
  Company Number: US-BAYER-2013-156373

PATIENT
  Age: 29 Year
  Sex: Female
  Weight: 56.69 kg

DRUGS (1)
  1. MIRENA [Suspect]
     Indication: CONTRACEPTION
     Dosage: 20 MCG/24HR, CONT
     Route: 015
     Dates: start: 20080623, end: 20130313

REACTIONS (14)
  - Uterine perforation [None]
  - Deep vein thrombosis [None]
  - Genital haemorrhage [None]
  - Abdominal pain [None]
  - Abdominal pain lower [None]
  - Injury [None]
  - Emotional distress [None]
  - Dyspareunia [None]
  - Migraine [None]
  - Depression [None]
  - Anxiety [None]
  - Depressed mood [None]
  - Device issue [None]
  - Stress [None]
